FAERS Safety Report 25563848 (Version 2)
Quarter: 2025Q4

REPORT INFORMATION
  Report Type: Spontaneous
  Country: CA (occurrence: CA)
  Receive Date: 20250716
  Receipt Date: 20251118
  Transmission Date: 20260119
  Serious: Yes (Life-Threatening, Hospitalization, Congenital Anomaly)
  Sender: MIRUM PHARMACEUTICALS
  Company Number: CA-MIRUM PHARMACEUTICALS, INC.-CA-MIR-25-00453

PATIENT

DRUGS (1)
  1. LIVMARLI [Suspect]
     Active Substance: MARALIXIBAT CHLORIDE
     Indication: Product used for unknown indication
     Dosage: 4 MILLILITER, QD
     Route: 064
     Dates: start: 20250224, end: 20250620

REACTIONS (6)
  - Neonatal asphyxia [Not Recovered/Not Resolved]
  - Anorectal malformation [Not Recovered/Not Resolved]
  - Neonatal dyspnoea [Not Recovered/Not Resolved]
  - Skin ulcer [Not Recovered/Not Resolved]
  - Poor feeding infant [Not Recovered/Not Resolved]
  - Foetal exposure during pregnancy [Unknown]

NARRATIVE: CASE EVENT DATE: 20250620
